FAERS Safety Report 16706143 (Version 1)
Quarter: 2019Q3

REPORT INFORMATION
  Report Type: Spontaneous
  Country: US (occurrence: US)
  Receive Date: 20190628
  Receipt Date: 20190628
  Transmission Date: 20191004
  Serious: No
  Sender: FDA-Public Use
  Company Number: None

PATIENT
  Age: 29 Year
  Sex: Female

DRUGS (4)
  1. AMBRISENTAN 5MG TAB (X30) [Suspect]
     Active Substance: AMBRISENTAN
     Indication: PULMONARY ARTERIAL HYPERTENSION
     Route: 048
     Dates: start: 201903
  2. SILDENAFIL. [Concomitant]
     Active Substance: SILDENAFIL
  3. DIGOXIN. [Concomitant]
     Active Substance: DIGOXIN
  4. ALDACTONE [Concomitant]
     Active Substance: SPIRONOLACTONE

REACTIONS (3)
  - Respiratory disorder [None]
  - Product dose omission [None]
  - Manufacturing issue [None]

NARRATIVE: CASE EVENT DATE: 20190628
